FAERS Safety Report 16990838 (Version 8)
Quarter: 2020Q2

REPORT INFORMATION
  Report Type: Spontaneous
  Country: TW (occurrence: TW)
  Receive Date: 20191104
  Receipt Date: 20200616
  Transmission Date: 20200713
  Serious: Yes (Hospitalization, Other)
  Sender: FDA-Public Use
  Company Number: TW-PFIZER INC-2019316321

PATIENT
  Age: 63 Year
  Sex: Male

DRUGS (2)
  1. SUTENT [Suspect]
     Active Substance: SUNITINIB MALATE
     Dosage: 25 MG, BID (2 WEEKS ON, 1 WEEK OFF))
     Route: 048
     Dates: start: 2019
  2. SUTENT [Suspect]
     Active Substance: SUNITINIB MALATE
     Indication: METASTATIC RENAL CELL CARCINOMA
     Dosage: 12.5 MG, 2X/DAY (BID)
     Route: 048
     Dates: start: 20190718, end: 2019

REACTIONS (15)
  - Wound [Recovering/Resolving]
  - Gastrooesophageal reflux disease [Recovering/Resolving]
  - Decreased appetite [Recovered/Resolved]
  - Oedema peripheral [Unknown]
  - Hair colour changes [Not Recovered/Not Resolved]
  - Incorrect dose administered [Unknown]
  - Syncope [Recovering/Resolving]
  - Paraesthesia oral [Recovering/Resolving]
  - Skin wound [Unknown]
  - Palmar-plantar erythrodysaesthesia syndrome [Recovering/Resolving]
  - Hypogeusia [Recovering/Resolving]
  - Blood glucose decreased [Recovering/Resolving]
  - Diarrhoea [Unknown]
  - Rash erythematous [Unknown]
  - Yellow skin [Not Recovered/Not Resolved]

NARRATIVE: CASE EVENT DATE: 2019
